FAERS Safety Report 4551878-2 (Version None)
Quarter: 2005Q1

REPORT INFORMATION
  Report Type: 
  Country: None (occurrence: None)
  Receive Date: 20050111
  Receipt Date: 20050104
  Transmission Date: 20050727
  Serious: Yes (Hospitalization)
  Sender: FDA-Public Use
  Company Number: 2005-UK-00007UK

PATIENT
  Sex: Male

DRUGS (2)
  1. MORPHINE SULFATE [Suspect]
     Dosage: 10 MG IN 5 ML STRENGTH (SEE TEXT), NR
  2. MORPHINE SULFATE [Concomitant]

REACTIONS (1)
  - DRUG INEFFECTIVE [None]
